FAERS Safety Report 4423384-7 (Version None)
Quarter: 2004Q3

REPORT INFORMATION
  Report Type: 
  Country: None (occurrence: None)
  Receive Date: 20040806
  Receipt Date: 20030731
  Transmission Date: 20050211
  Serious: Yes (Other)
  Sender: FDA-Public Use
  Company Number: BR-JNJFOC-20040604003

PATIENT
  Age: 19 Year
  Sex: Female

DRUGS (6)
  1. TYLENOL ANALGESIC (ACETAMINOPHEN) [Suspect]
     Dosage: ORAL
     Route: 048
  2. HALOPERIDOL [Suspect]
     Indication: SUICIDE ATTEMPT
  3. METAMIZOLE (METAMIZOLE) [Suspect]
     Indication: SUICIDE ATTEMPT
  4. PROMETAZINE (PROMETHAZINE) [Concomitant]
     Indication: SUICIDE ATTEMPT
  5. MIDAZOLAM HCL [Concomitant]
     Indication: SUICIDE ATTEMPT
  6. ALCOHOL (ETHANOL) [Suspect]
     Indication: SUICIDE ATTEMPT

REACTIONS (4)
  - ALCOHOL USE [None]
  - INTENTIONAL MISUSE [None]
  - SOMNOLENCE [None]
  - SUICIDE ATTEMPT [None]
